FAERS Safety Report 6804558-4 (Version None)
Quarter: 2010Q2

REPORT INFORMATION
  Report Type: 
  Country: None (occurrence: None)
  Receive Date: 20100628
  Receipt Date: 20070622
  Transmission Date: 20101027
  Serious: No
  Sender: FDA-Public Use
  Company Number: US-PFIZER INC-2007021138

PATIENT
  Sex: Female
  Weight: 56.7 kg

DRUGS (4)
  1. GEODON [Suspect]
     Indication: MAJOR DEPRESSION
     Dates: start: 20060713, end: 20060801
  2. LEVOTHYROXINE SODIUM [Concomitant]
  3. BETASERON [Concomitant]
     Indication: MULTIPLE SCLEROSIS
  4. AMITRIPTYLINE [Concomitant]

REACTIONS (1)
  - DYSTONIA [None]
